FAERS Safety Report 17839376 (Version 5)
Quarter: 2021Q3

REPORT INFORMATION
  Report Type: Spontaneous
  Country: DE (occurrence: DE)
  Receive Date: 20200529
  Receipt Date: 20210716
  Transmission Date: 20211014
  Serious: Yes (Death, Hospitalization)
  Sender: FDA-Public Use
  Company Number: NVSC2020DE144496

PATIENT
  Age: 38 Year
  Sex: Female

DRUGS (9)
  1. METOPROLOL. [Suspect]
     Active Substance: METOPROLOL
     Indication: HYPERTENSION
     Dosage: TOTAL CUMULATIVE DOSE OF 10.5 G METOPROLOL SUCCINATE
     Route: 048
  2. ERGENYL CHRONO [Concomitant]
     Active Substance: VALPROIC ACID
     Indication: PRODUCT USED FOR UNKNOWN INDICATION
     Dosage: UNK
     Route: 065
  3. LORAZEPAM. [Suspect]
     Active Substance: LORAZEPAM
     Indication: PRODUCT USED FOR UNKNOWN INDICATION
     Dosage: TOTAL CUMULATIVE DOSE OF 50 MG
     Route: 048
  4. L?THYROXIN [Concomitant]
     Active Substance: LEVOTHYROXINE SODIUM
     Indication: PRODUCT USED FOR UNKNOWN INDICATION
     Dosage: 100
     Route: 065
  5. ESCITALOPRAM [Concomitant]
     Active Substance: ESCITALOPRAM OXALATE
     Indication: PRODUCT USED FOR UNKNOWN INDICATION
     Dosage: 10 UNK
     Route: 065
  6. FENTANYL. [Suspect]
     Active Substance: FENTANYL
     Dosage: 23 FENTANYL PATCHES ADHERED TO SKIN, WHICH WERE CORRESPONDED TO A CUMULATIVE DOSE OF 419 MCG/H
     Route: 062
  7. MELPERON [Concomitant]
     Active Substance: MELPERONE
     Indication: PRODUCT USED FOR UNKNOWN INDICATION
     Dosage: 75 MG, TID
     Route: 065
  8. PROMETHAZINE [Concomitant]
     Active Substance: PROMETHAZINE HYDROCHLORIDE
     Indication: PRODUCT USED FOR UNKNOWN INDICATION
     Dosage: 50 MG, BID
     Route: 065
  9. FENTANYL. [Suspect]
     Active Substance: FENTANYL
     Indication: PRODUCT USED FOR UNKNOWN INDICATION
     Dosage: 416 UG/HR, (11X25 UG, 12 ? 12 UG)
     Route: 048

REACTIONS (20)
  - Acute myocardial infarction [Fatal]
  - Ventricular tachycardia [Fatal]
  - Coronary artery occlusion [Fatal]
  - Respiratory failure [Fatal]
  - Vasoconstriction [Fatal]
  - Cardiac arrest [Fatal]
  - Hyperkalaemia [Fatal]
  - Bundle branch block left [Fatal]
  - Toxicity to various agents [Fatal]
  - Blood glucose increased [Fatal]
  - Intentional overdose [Fatal]
  - Intracardiac thrombus [Fatal]
  - Circulatory collapse [Fatal]
  - Coma [Fatal]
  - Metabolic acidosis [Fatal]
  - Embolic cerebral infarction [Fatal]
  - Cerebral ischaemia [Fatal]
  - Suicide attempt [Fatal]
  - Completed suicide [Fatal]
  - Haemodynamic instability [Unknown]
